FAERS Safety Report 7998918-6 (Version None)
Quarter: 2011Q4

REPORT INFORMATION
  Report Type: 
  Country: None (occurrence: None)
  Receive Date: 20111221
  Receipt Date: 20111213
  Transmission Date: 20120403
  Serious: Yes (Hospitalization)
  Sender: FDA-Public Use
  Company Number: ES-GLAXOSMITHKLINE-B0767791A

PATIENT
  Sex: Female
  Weight: 70 kg

DRUGS (2)
  1. GROWTH HORMONE THERAPY [Concomitant]
     Dates: start: 20111014
  2. PAZOPANIB [Suspect]
     Indication: NEUROENDOCRINE TUMOUR
     Dosage: 800MG PER DAY
     Route: 048
     Dates: start: 20111031, end: 20111123

REACTIONS (1)
  - ACUTE CORONARY SYNDROME [None]
